FAERS Safety Report 9629559 (Version 1)
Quarter: 2013Q4

REPORT INFORMATION
  Report Type: Spontaneous
  Country: US (occurrence: US)
  Receive Date: 20131017
  Receipt Date: 20131017
  Transmission Date: 20140711
  Serious: Yes (Hospitalization, Other)
  Sender: FDA-Public Use
  Company Number: US-ELI_LILLY_AND_COMPANY-US201310002049

PATIENT
  Age: 66 Year
  Sex: Male

DRUGS (6)
  1. INSULIN HUMAN [Suspect]
     Indication: TYPE 2 DIABETES MELLITUS
     Dosage: 22 U, EACH MORNING
  2. INSULIN HUMAN [Suspect]
     Dosage: 22 U, QD
  3. INSULIN HUMAN [Suspect]
     Dosage: UNK, PRN
     Dates: start: 1999
  4. NOVOLOG [Suspect]
  5. INSULIN HUMAN [Suspect]
  6. HUMULIN NPH [Suspect]

REACTIONS (13)
  - Cerebrovascular accident [Unknown]
  - Spinal column injury [Unknown]
  - Loss of consciousness [Unknown]
  - Blood glucose increased [Unknown]
  - Abdominal discomfort [Unknown]
  - Malaise [Unknown]
  - Thinking abnormal [Unknown]
  - Speech disorder [Unknown]
  - Dysphemia [Unknown]
  - Vision blurred [Unknown]
  - Dizziness [Unknown]
  - Blood glucose increased [Recovering/Resolving]
  - Intentional drug misuse [Unknown]
